FAERS Safety Report 5032161-8 (Version None)
Quarter: 2006Q2

REPORT INFORMATION
  Report Type: 
  Country: None (occurrence: None)
  Receive Date: 20060619
  Receipt Date: 20060609
  Transmission Date: 20061013
  Serious: Yes (Other)
  Sender: FDA-Public Use
  Company Number: TCI2006A02225

PATIENT
  Age: 74 Year
  Sex: Male

DRUGS (6)
  1. ACTOS [Suspect]
     Indication: DIABETES MELLITUS NON-INSULIN-DEPENDENT
     Dosage: 15 MG (15 MG 1- D)
     Route: 048
     Dates: start: 20051018
  2. NATEGLINIDE [Suspect]
     Indication: DIABETES MELLITUS NON-INSULIN-DEPENDENT
     Dosage: 60 MG, 90 MG, 120 MG OR PLACEBO
     Route: 048
     Dates: start: 20051115
  3. HALCION [Concomitant]
  4. MICARDIS [Concomitant]
  5. ASPIRIN [Concomitant]
  6. LENDORMIN D (BROTIZOLAM) [Concomitant]

REACTIONS (1)
  - BLADDER NEOPLASM [None]
